FAERS Safety Report 9246333 (Version 2)
Quarter: 2013Q2

REPORT INFORMATION
  Report Type: Spontaneous
  Country: US (occurrence: US)
  Receive Date: 20130422
  Receipt Date: 20130422
  Transmission Date: 20140414
  Serious: Yes (Hospitalization, Other)
  Sender: FDA-Public Use
  Company Number: US-BRISTOL-MYERS SQUIBB COMPANY-18588962

PATIENT
  Age: 54 Year
  Sex: Male

DRUGS (16)
  1. BYDUREON 2MG VIAL + SYRINGE [Suspect]
     Indication: TYPE 2 DIABETES MELLITUS
     Route: 058
     Dates: start: 20121003, end: 20121106
  2. LANTUS [Concomitant]
     Indication: TYPE 2 DIABETES MELLITUS
     Route: 058
  3. HUMALOG [Concomitant]
     Indication: TYPE 2 DIABETES MELLITUS
     Route: 058
  4. LISINOPRIL [Concomitant]
     Route: 048
  5. ZOCOR [Concomitant]
     Route: 048
  6. INSULIN [Concomitant]
     Dosage: 1DF = 31GX5/16?INJECTION
  7. OMEPRAZOLE [Concomitant]
     Route: 048
  8. CIALIS [Concomitant]
     Route: 048
  9. ECONAZOLE [Concomitant]
  10. ECONAZOLE NITRATE [Concomitant]
     Dosage: CREAM
     Route: 061
  11. LEVOTHYROXINE SODIUM [Concomitant]
     Route: 048
  12. SIMVASTATIN [Concomitant]
     Route: 048
  13. INDOMETHACIN ER CAPS [Concomitant]
     Route: 048
  14. METFORMIN HCL XR TABS [Concomitant]
     Route: 048
  15. AMOXICILLIN [Concomitant]
     Dosage: 1DF = 875-125MG
     Route: 048
  16. CEPHALEXIN [Concomitant]
     Route: 048

REACTIONS (10)
  - Pancreatitis [Recovered/Resolved]
  - Renal failure [Unknown]
  - Malaise [Recovered/Resolved]
  - Off label use [Recovered/Resolved]
  - Blood pressure increased [None]
  - Left ventricular hypertrophy [None]
  - Aortic disorder [None]
  - Tricuspid valve incompetence [None]
  - Mitral valve incompetence [None]
  - Blood sodium decreased [None]
